FAERS Safety Report 20591313 (Version 1)
Quarter: 2022Q1

REPORT INFORMATION
  Report Type: Spontaneous
  Country: US (occurrence: US)
  Receive Date: 20220314
  Receipt Date: 20220314
  Transmission Date: 20220423
  Serious: No
  Sender: FDA-Public Use
  Company Number: US-BioDelivery Sciences International-2022BDSI0034

PATIENT
  Sex: Female

DRUGS (4)
  1. BELBUCA [Suspect]
     Active Substance: BUPRENORPHINE HYDROCHLORIDE
     Indication: Pain
     Route: 002
     Dates: start: 202201
  2. METOPROLOL [Concomitant]
     Active Substance: METOPROLOL
     Indication: Hypertension
     Dosage: UNKNOWN
     Route: 065
     Dates: end: 202008
  3. METOPROLOL [Concomitant]
     Active Substance: METOPROLOL
     Dosage: 100MG AND 50 MG TOGETHER ONCE A DAY
     Route: 065
     Dates: start: 202008
  4. ROBAXIN [Concomitant]
     Active Substance: METHOCARBAMOL
     Indication: Myalgia
     Dosage: 2 TABLETS AS NEEDED
     Route: 065

REACTIONS (3)
  - Wrong technique in product usage process [Unknown]
  - Oral administration complication [Unknown]
  - Product solubility abnormal [Unknown]

NARRATIVE: CASE EVENT DATE: 20220101
